FAERS Safety Report 5499673-4 (Version None)
Quarter: 2007Q4

REPORT INFORMATION
  Report Type: 
  Country: None (occurrence: None)
  Receive Date: 20071026
  Receipt Date: 20070831
  Transmission Date: 20080405
  Serious: Yes (Disabling)
  Sender: FDA-Public Use
  Company Number: CH-ROCHE-480124

PATIENT
  Age: 57 Year
  Sex: Female

DRUGS (2)
  1. BONIVA [Suspect]
     Indication: OSTEOPOROSIS
     Dosage: FORM REPORTED AS FILM COATED TABLET.
     Route: 048
     Dates: start: 20061016, end: 20061216
  2. MEDIAVEN [Concomitant]
     Dosage: FORM REPORTED AS FILM COATED TABLET.
     Route: 048

REACTIONS (2)
  - INFLUENZA LIKE ILLNESS [None]
  - LICHEN PLANUS [None]
